FAERS Safety Report 6061075-X (Version None)
Quarter: 2009Q1

REPORT INFORMATION
  Report Type: 
  Country: None (occurrence: None)
  Receive Date: 20090129
  Receipt Date: 20090129
  Transmission Date: 20090719
  Serious: Yes (Hospitalization)
  Sender: FDA-Public Use
  Company Number: None

PATIENT
  Age: 59 Year
  Sex: Male
  Weight: 62 kg

DRUGS (1)
  1. CEFEPIME [Suspect]
     Dosage: 2 GM TID IV
     Route: 042
     Dates: start: 20090113, end: 20090127

REACTIONS (2)
  - NEPHRITIS [None]
  - RENAL FAILURE ACUTE [None]
